FAERS Safety Report 7189816-9 (Version None)
Quarter: 2010Q4

REPORT INFORMATION
  Report Type: 
  Country: None (occurrence: None)
  Receive Date: 20101223
  Receipt Date: 20101215
  Transmission Date: 20110411
  Serious: No
  Sender: FDA-Public Use
  Company Number: US-BIOGENIDEC-2010BI044364

PATIENT
  Sex: Female

DRUGS (1)
  1. TYSABRI [Suspect]
     Indication: ACCIDENTAL EXPOSURE
     Dates: start: 20101215, end: 20101215

REACTIONS (2)
  - ACCIDENTAL EXPOSURE [None]
  - EYE PAIN [None]
